FAERS Safety Report 6305569-8 (Version None)
Quarter: 2009Q3

REPORT INFORMATION
  Report Type: 
  Country: None (occurrence: None)
  Receive Date: 20090811
  Receipt Date: 20090713
  Transmission Date: 20100115
  Serious: Yes (Hospitalization)
  Sender: FDA-Public Use
  Company Number: GB-MERCK-0907GBR00043

PATIENT
  Age: 72 Year
  Sex: Female

DRUGS (6)
  1. TRUSOPT [Suspect]
     Indication: GLAUCOMA
     Route: 047
     Dates: start: 20090301, end: 20090601
  2. BIMATOPROST [Concomitant]
     Indication: GLAUCOMA
     Route: 047
  3. BIMATOPROST AND TIMOLOL MALEATE [Concomitant]
     Route: 047
  4. SULFASALAZINE [Concomitant]
     Route: 065
     Dates: start: 20010101
  5. NAPROXEN [Concomitant]
     Indication: RHEUMATOID ARTHRITIS
     Route: 065
  6. PENICILLAMINE [Concomitant]
     Indication: RHEUMATOID ARTHRITIS
     Route: 065

REACTIONS (5)
  - HEADACHE [None]
  - HYPERTENSION [None]
  - LIMB OPERATION [None]
  - NAUSEA [None]
  - OVERDOSE [None]
